FAERS Safety Report 10239149 (Version 1)
Quarter: 2014Q2

REPORT INFORMATION
  Report Type: Spontaneous
  Country: US (occurrence: US)
  Receive Date: 20140616
  Receipt Date: 20140616
  Transmission Date: 20141212
  Serious: Yes (Other)
  Sender: FDA-Public Use
  Company Number: US-ENDO PHARMACEUTICALS INC.-OPIR20130021

PATIENT
  Sex: Female

DRUGS (1)
  1. OPANA [Suspect]
     Indication: DRUG ABUSE
     Dosage: UNK

REACTIONS (2)
  - Drug abuse [Unknown]
  - Incorrect route of drug administration [Unknown]
